FAERS Safety Report 15438469 (Version 1)
Quarter: 2018Q3

REPORT INFORMATION
  Report Type: Spontaneous
  Country: US (occurrence: US)
  Receive Date: 20180928
  Receipt Date: 20180928
  Transmission Date: 20181010
  Serious: No
  Sender: FDA-Public Use
  Company Number: US-BION-007163

PATIENT
  Age: 77 Year
  Sex: Female
  Weight: 66.68 kg

DRUGS (2)
  1. IMODIUM A?D [Suspect]
     Active Substance: LOPERAMIDE HYDROCHLORIDE
     Indication: PROPHYLAXIS
     Dosage: 2?3 GELS DAILY
     Route: 048
  2. COLEBIL [Concomitant]
     Indication: PROPHYLAXIS
     Dosage: STRENGTH: 1 MG?2 OF COLEBEL 1MG

REACTIONS (6)
  - Incorrect dose administered [Not Recovered/Not Resolved]
  - Product use in unapproved indication [Not Recovered/Not Resolved]
  - Product use complaint [Unknown]
  - Drug prescribing error [Not Recovered/Not Resolved]
  - Product package associated injury [Recovering/Resolving]
  - Incorrect drug administration duration [Not Recovered/Not Resolved]

NARRATIVE: CASE EVENT DATE: 20180430
